FAERS Safety Report 6669172-2 (Version None)
Quarter: 2010Q2

REPORT INFORMATION
  Report Type: 
  Country: None (occurrence: None)
  Receive Date: 20100406
  Receipt Date: 20100326
  Transmission Date: 20101027
  Serious: Yes (Other)
  Sender: FDA-Public Use
  Company Number: BR-PFIZER INC-2010038777

PATIENT
  Sex: Male

DRUGS (2)
  1. DETRUSITOL [Suspect]
     Indication: HYPERTONIC BLADDER
     Dosage: UNK
     Route: 048
  2. OXYBUTYNIN HYDROCHLORIDE [Concomitant]
     Dosage: UNK
     Dates: start: 19900101

REACTIONS (1)
  - URINARY INCONTINENCE [None]
